FAERS Safety Report 25273320 (Version 1)
Quarter: 2025Q2

REPORT INFORMATION
  Report Type: Spontaneous
  Country: US (occurrence: US)
  Receive Date: 20250506
  Receipt Date: 20250506
  Transmission Date: 20250717
  Serious: No
  Sender: AMNEAL
  Company Number: US-AMNEAL PHARMACEUTICALS-2024-AMRX-04312

PATIENT
  Sex: Male
  Weight: 10.884 kg

DRUGS (6)
  1. VIGABATRIN [Suspect]
     Active Substance: VIGABATRIN
     Indication: Epilepsy
     Dosage: 500 MG POWDER PACKETS 1 ^S, MIX 2 PACKETS IN 20 ML OF WATER AND GIVE/TAKE 14 ML (700 MG), 2 /DAY
     Route: 048
     Dates: start: 20241019
  2. VIGABATRIN [Suspect]
     Active Substance: VIGABATRIN
     Dosage: 500 MG POWDER PACKETS 1 S, MIX 1 PACKETS IN 10 ML OF WATER AND GIVE/TAKE, 2 /DAY
     Route: 048
  3. H.P. ACTHAR [Concomitant]
     Active Substance: CORTICOTROPIN
     Indication: Product used for unknown indication
     Route: 065
  4. LACTULOSE [Concomitant]
     Active Substance: LACTULOSE
     Indication: Product used for unknown indication
     Route: 065
  5. NEXIUM I.V. [Concomitant]
     Active Substance: ESOMEPRAZOLE SODIUM
     Indication: Product used for unknown indication
     Route: 065
  6. VITAMIN D3 [Concomitant]
     Active Substance: CHOLECALCIFEROL
     Indication: Product used for unknown indication
     Route: 065

REACTIONS (3)
  - Coordination abnormal [Unknown]
  - Somnolence [Unknown]
  - Vomiting [Unknown]
